FAERS Safety Report 17519785 (Version 1)
Quarter: 2020Q1

REPORT INFORMATION
  Report Type: Spontaneous
  Country: NL (occurrence: NL)
  Receive Date: 20200310
  Receipt Date: 20200310
  Transmission Date: 20200409
  Serious: Yes (Hospitalization)
  Sender: FDA-Public Use
  Company Number: NL-MYLANLABS-2020M1025759

PATIENT
  Age: 63 Year
  Sex: Female
  Weight: 75 kg

DRUGS (5)
  1. SEROQUEL [Concomitant]
     Active Substance: QUETIAPINE FUMARATE
     Dosage: TABLET MET GEREGULEERDE AFGIFTE, 50 MG (MILLIGRAM)
  2. WELLBUTRIN [Concomitant]
     Active Substance: BUPROPION HYDROCHLORIDE
     Dosage: TABLET MET GEREGULEERDE AFGIFTE, 300 MG (MILLIGRAM)
  3. PARACETAMOL [Concomitant]
     Active Substance: ACETAMINOPHEN
     Dosage: TABLET, 500 MG (MILLIGRAM)
  4. SYMBICORT [Concomitant]
     Active Substance: BUDESONIDE\FORMOTEROL FUMARATE DIHYDRATE
     Dosage: INHALATIEPOEDER, 400/12 ?G/DOSIS (MICROGRAM PER DOSIS)
  5. NORTRIPTYLINE [Suspect]
     Active Substance: NORTRIPTYLINE
     Indication: DEPRESSION
     Dosage: TABLET, 25 MG (MILLIGRAM), 2 KEER PER DAG, 2, 12 HRS
     Dates: start: 20180815

REACTIONS (2)
  - Circulatory collapse [Recovered/Resolved]
  - Seizure [Recovered/Resolved]

NARRATIVE: CASE EVENT DATE: 20180908
